FAERS Safety Report 8610438-4 (Version None)
Quarter: 2012Q3

REPORT INFORMATION
  Report Type: 
  Country: None (occurrence: None)
  Receive Date: 20120801
  Receipt Date: 20120720
  Transmission Date: 20120928
  Serious: Yes (Life-Threatening, Hospitalization)
  Sender: FDA-Public Use
  Company Number: P0581

PATIENT
  Age: 71 Year
  Sex: Male
  Weight: 83.4 kg

DRUGS (9)
  1. COZAAR [Concomitant]
  2. LUPRON [Concomitant]
  3. FISH OIL (FISH OIL) [Concomitant]
  4. CALCIUM/VIT D (CALCIUM CARBONATE, VITAMIN D NOS) [Concomitant]
  5. POTASSIUM CHLORIDE [Concomitant]
  6. PROVENGE [Suspect]
     Indication: PROSTATE CANCER METASTATIC
     Dosage: INTRAVENOUS
     Route: 042
     Dates: start: 20120511, end: 20120511
  7. PROVENGE [Suspect]
     Indication: PROSTATE CANCER METASTATIC
     Dosage: INTRAVENOUS
     Route: 042
     Dates: start: 20120427, end: 20120427
  8. PROVENGE [Suspect]
     Indication: PROSTATE CANCER METASTATIC
     Dosage: INTRAVENOUS
     Route: 042
     Dates: start: 20120525, end: 20120525
  9. AMLODIPINE [Concomitant]

REACTIONS (8)
  - CEREBROVASCULAR ACCIDENT [None]
  - ATRIAL THROMBOSIS [None]
  - LOSS OF CONSCIOUSNESS [None]
  - ACUTE MYOCARDIAL INFARCTION [None]
  - CORONARY ARTERY DISEASE [None]
  - DEVICE COMPONENT ISSUE [None]
  - COAGULOPATHY [None]
  - LYMPHADENOPATHY [None]
